FAERS Safety Report 5173419-1 (Version None)
Quarter: 2006Q4

REPORT INFORMATION
  Report Type: 
  Country: None (occurrence: None)
  Receive Date: 20061207
  Receipt Date: 20061207
  Transmission Date: 20070319
  Serious: No
  Sender: FDA-Public Use
  Company Number: None

PATIENT
  Age: 68 Year
  Sex: Female
  Weight: 52.6 kg

DRUGS (17)
  1. FLUCONAZOLE [Suspect]
     Indication: INFECTION
     Dosage: 100MG   DAILY   IV
     Route: 042
     Dates: start: 20060905, end: 20060914
  2. LINEZOLID [Suspect]
     Indication: INFECTION
     Dosage: 600MG  TWICE DAILY  IV
     Route: 042
     Dates: start: 20060905, end: 20060911
  3. CLONIDINE [Concomitant]
  4. HYDRALAZINE HCL [Concomitant]
  5. PREDNISONE TAB [Concomitant]
  6. REGLAN [Concomitant]
  7. NEXIUM [Concomitant]
  8. ISORDIL [Concomitant]
  9. COREG [Concomitant]
  10. FLONAS [Concomitant]
  11. NORVASC [Concomitant]
  12. SYNTHROID [Concomitant]
  13. MULTI-VITAMIN [Concomitant]
  14. ZINC [Concomitant]
  15. ASCORBIC ACID [Concomitant]
  16. DUONEB [Concomitant]
  17. NEUTRAPHOS [Concomitant]

REACTIONS (1)
  - PANCYTOPENIA [None]
